FAERS Safety Report 15222024 (Version 1)
Quarter: 2018Q3

REPORT INFORMATION
  Report Type: Spontaneous
  Country: US (occurrence: US)
  Receive Date: 20180705
  Receipt Date: 20180705
  Transmission Date: 20181010
  Serious: Yes (Other)
  Sender: FDA-Public Use
  Company Number: None

PATIENT
  Age: 59 Year
  Sex: Male
  Weight: 70.65 kg

DRUGS (2)
  1. ETOPOSIDE. [Suspect]
     Active Substance: ETOPOSIDE
     Indication: LUNG NEOPLASM MALIGNANT
     Dosage: ?          OTHER FREQUENCY:DAYS 1?5 AND 29?33;?
     Route: 041
     Dates: start: 20180702, end: 20180705
  2. CISPLATIN. [Concomitant]
     Active Substance: CISPLATIN
     Dates: start: 20180702, end: 20180702

REACTIONS (5)
  - Chest pain [None]
  - Dyspnoea [None]
  - Hyperhidrosis [None]
  - Infusion related reaction [None]
  - Feeling hot [None]

NARRATIVE: CASE EVENT DATE: 20180702
